FAERS Safety Report 9106043 (Version 4)
Quarter: 2013Q2

REPORT INFORMATION
  Report Type: Spontaneous
  Country: DE (occurrence: DE)
  Receive Date: 20130220
  Receipt Date: 20130425
  Transmission Date: 20140414
  Serious: Yes (Death, Hospitalization, Other)
  Sender: FDA-Public Use
  Company Number: DE-CELGENEUS-062-50794-13012833

PATIENT
  Age: 62 Year
  Sex: Male

DRUGS (9)
  1. VIDAZA [Suspect]
     Indication: MYELODYSPLASTIC SYNDROME
     Route: 065
     Dates: start: 20121217, end: 20121223
  2. VIDAZA [Suspect]
     Route: 065
     Dates: end: 20130221
  3. RED BLOOD CELLS [Concomitant]
     Indication: PRODUCT USED FOR UNKNOWN INDICATION
     Route: 065
     Dates: start: 201208, end: 201210
  4. RED BLOOD CELLS [Concomitant]
     Route: 065
  5. DIFLUCAN [Concomitant]
     Indication: PRODUCT USED FOR UNKNOWN INDICATION
     Dosage: 100 MILLIGRAM
     Route: 065
     Dates: start: 20121122
  6. DIFLUCAN [Concomitant]
     Indication: INFECTION
     Dosage: 100 MILLIGRAM
     Route: 065
     Dates: start: 20130206
  7. CIPROFLOXACIN [Concomitant]
     Indication: PRODUCT USED FOR UNKNOWN INDICATION
     Dosage: 1000 MILLIGRAM
     Route: 065
     Dates: start: 20121122
  8. CIPROFLOXACIN [Concomitant]
     Indication: INFECTION
     Dosage: 1000 MILLIGRAM
     Route: 065
     Dates: start: 20130211
  9. CIPROFLOXACIN [Concomitant]
     Dosage: 100 MILLIGRAM
     Route: 065
     Dates: start: 20130205

REACTIONS (2)
  - Respiratory tract infection viral [Not Recovered/Not Resolved]
  - Platelet count decreased [Fatal]
